FAERS Safety Report 7718732-6 (Version None)
Quarter: 2011Q3

REPORT INFORMATION
  Report Type: 
  Country: None (occurrence: None)
  Receive Date: 20110830
  Receipt Date: 20110822
  Transmission Date: 20111222
  Serious: Yes (Other)
  Sender: FDA-Public Use
  Company Number: US-PERRIGO-11US006984

PATIENT
  Sex: Female
  Weight: 4.535 kg

DRUGS (1)
  1. SIMETHICONE DROPS 66.667 MG/ML 882 [Suspect]
     Indication: FLATULENCE
     Dosage: 0.3 ML, EVERY 3-4 HOURS
     Route: 048
     Dates: start: 20110710, end: 20110815

REACTIONS (2)
  - IRRITABILITY [None]
  - PYREXIA [None]
